FAERS Safety Report 25990874 (Version 1)
Quarter: 2025Q4

REPORT INFORMATION
  Report Type: Spontaneous
  Country: US (occurrence: None)
  Receive Date: 20251031
  Receipt Date: 20251031
  Transmission Date: 20260118
  Serious: Yes (Other)
  Sender: FDA-CTU
  Company Number: None

PATIENT
  Age: 12 Year
  Sex: Female
  Weight: 56.1 kg

DRUGS (14)
  1. ALYFTREK [Suspect]
     Active Substance: DEUTIVACAFTOR\TEZACAFTOR\VANZACAFTOR
     Indication: Cystic fibrosis
     Dosage: 2 DF DAILY ORAL ?
     Route: 048
     Dates: start: 20250910, end: 20251028
  2. AZITHROMYCIN [Concomitant]
     Active Substance: AZITHROMYCIN
  3. aztreonam inhalation [Concomitant]
  4. SYMBICORT [Concomitant]
     Active Substance: BUDESONIDE\FORMOTEROL FUMARATE DIHYDRATE
  5. VITAMINS [Concomitant]
     Active Substance: VITAMINS
  6. levalbuterol HFA [Concomitant]
  7. levalbuterol NEB [Concomitant]
  8. OMEPRAZOLE [Concomitant]
     Active Substance: OMEPRAZOLE
  9. PANCREAZE [Concomitant]
     Active Substance: PANCRELIPASE AMYLASE\PANCRELIPASE LIPASE\PANCRELIPASE PROTEASE
  10. MIRALAX [Concomitant]
     Active Substance: POLYETHYLENE GLYCOL 3350
  11. PULMOZYME [Concomitant]
     Active Substance: DORNASE ALFA
  12. sodium chloride 7% inhalation [Concomitant]
  13. VITAMIN D [Concomitant]
     Active Substance: VITAMIN D NOS
  14. TRIKAFTA [Suspect]
     Active Substance: ELEXACAFTOR\IVACAFTOR\TEZACAFTOR

REACTIONS (5)
  - Anxiety [None]
  - Depression [None]
  - Irritability [None]
  - Self-injurious ideation [None]
  - Intentional self-injury [None]

NARRATIVE: CASE EVENT DATE: 20251028
